FAERS Safety Report 12553601 (Version 1)
Quarter: 2016Q3

REPORT INFORMATION
  Report Type: Spontaneous
  Country: IL (occurrence: IL)
  Receive Date: 20160713
  Receipt Date: 20160713
  Transmission Date: 20161109
  Serious: Yes (Hospitalization, Other)
  Sender: FDA-Public Use
  Company Number: IL-WATSON-2016-15034

PATIENT
  Age: 25 Year
  Sex: Male

DRUGS (2)
  1. DOXYCYCLINE. [Suspect]
     Active Substance: DOXYCYCLINE
     Indication: PNEUMONIA
     Dosage: 100 MG, BID
     Route: 048
  2. ALCOHOL. [Interacting]
     Active Substance: ALCOHOL
     Indication: PRODUCT USED FOR UNKNOWN INDICATION
     Dosage: 330 ML OF BEER (ALCOHOL)
     Route: 048

REACTIONS (2)
  - Oesophagitis ulcerative [Recovered/Resolved]
  - Alcohol interaction [Recovered/Resolved]
